FAERS Safety Report 20264002 (Version 1)
Quarter: 2021Q4

REPORT INFORMATION
  Report Type: Spontaneous
  Country: US (occurrence: None)
  Receive Date: 20211230
  Receipt Date: 20211230
  Transmission Date: 20220303
  Serious: No
  Sender: FDA-Public Use
  Company Number: None

PATIENT
  Age: 52 Year
  Sex: Female

DRUGS (1)
  1. COSENTYX [Suspect]
     Active Substance: SECUKINUMAB
     Indication: Psoriatic arthropathy
     Dosage: OTHER FREQUENCY : LOADING DOSE;?
     Route: 058
     Dates: start: 20211115, end: 20211220

REACTIONS (3)
  - Pruritus [None]
  - Skin burning sensation [None]
  - Finger deformity [None]

NARRATIVE: CASE EVENT DATE: 20211220
